FAERS Safety Report 11108715 (Version 1)
Quarter: 2015Q2

REPORT INFORMATION
  Report Type: Spontaneous
  Country: PT (occurrence: None)
  Receive Date: 20150511
  Receipt Date: 20150511
  Transmission Date: 20150821
  Serious: Yes (Death, Hospitalization, Other)
  Sender: FDA-Public Use
  Company Number: PT-H14001-14-00421

PATIENT
  Age: 36 Year
  Sex: Male
  Weight: 40 kg

DRUGS (9)
  1. CIPROFLOXACINA HIKMA 200MG/10MG SOLUTION FOR INFUSION (CIPROFLOXACIN) (200 MILLIGRAM/MILLILITERS) (CIPROFLOXACIN) [Suspect]
     Active Substance: CIPROFLOXACIN
     Indication: GASTROENTERITIS
     Dosage: 800 MG (400 MG, 1 IN 12 HR), INTRAVENOUS (NOT OTHERWISE SPECIFIED)?
     Route: 042
     Dates: start: 20140715, end: 20140723
  2. ATROPOCIL (ATROPINE SULFATE) [Concomitant]
  3. DOGMATIL FORTE [Suspect]
     Active Substance: SULPIRIDE
     Indication: ABNORMAL BEHAVIOUR
     Dosage: 400 MG (200 MG, 1 IN 12 HR), ORAL
     Route: 048
  4. OLANZAPINE (OLANZAPINE) [Suspect]
     Active Substance: OLANZAPINE
     Indication: ABNORMAL BEHAVIOUR
     Dosage: 20 MG )10 MG, 1 IN 12 HR), ORAL
     Route: 048
  5. LOVENOX [Concomitant]
     Active Substance: ENOXAPARIN SODIUM
  6. CIPROFLOXACINA HIKMA 200MG/10MG SOLUTION FOR INFUSION (CIPROFLOXACIN) (200 MILLIGRAM/MILLILITERS) (CIPROFLOXACIN) [Suspect]
     Active Substance: CIPROFLOXACIN
     Indication: PRODUCT USED FOR UNKNOWN INDICATION
     Dosage: 800 MG (400 MG, 1 IN 12 HR), INTRAVENOUS (NOT OTHERWISE SPECIFIED)?
     Route: 042
     Dates: start: 20140715, end: 20140723
  7. DOMPERIDONE [Concomitant]
     Active Substance: DOMPERIDONE
  8. HALDOL (HALOPERIDOL) [Concomitant]
  9. OMETON (OMEPRAZOLE SODIUM) [Concomitant]

REACTIONS (16)
  - Hypotension [None]
  - Bradycardia [None]
  - Hypoperfusion [None]
  - Autonomic nervous system imbalance [None]
  - Bacterial test positive [None]
  - Ischaemic hepatitis [None]
  - Drug interaction [None]
  - Hepatitis toxic [None]
  - Wheezing [None]
  - Escherichia test positive [None]
  - Dyspnoea [None]
  - Pneumonia aspiration [None]
  - Faecaloma [None]
  - Hepatitis acute [None]
  - Adrenal disorder [None]
  - Cardiac arrest [None]

NARRATIVE: CASE EVENT DATE: 2014
